FAERS Safety Report 4262053-3 (Version None)
Quarter: 2004Q1

REPORT INFORMATION
  Report Type: 
  Country: None (occurrence: None)
  Receive Date: 20040102
  Receipt Date: 20031218
  Transmission Date: 20041129
  Serious: Yes (Other)
  Sender: FDA-Public Use
  Company Number: US-GLAXOSMITHKLINE-A0443672A

PATIENT
  Age: 48 Year
  Sex: Male

DRUGS (4)
  1. THORAZINE [Suspect]
     Indication: ILL-DEFINED DISORDER
  2. RESTORIL [Concomitant]
  3. VISTARIL [Concomitant]
  4. XANAX [Concomitant]

REACTIONS (9)
  - BRAIN DAMAGE [None]
  - CARDIAC DISORDER [None]
  - GASTROINTESTINAL DISORDER [None]
  - HAEMORRHAGE [None]
  - OVERDOSE [None]
  - PSYCHOTIC DISORDER [None]
  - RENAL FAILURE ACUTE [None]
  - TINNITUS [None]
  - TONGUE DISORDER [None]
